FAERS Safety Report 10300360 (Version 3)
Quarter: 2014Q3

REPORT INFORMATION
  Report Type: Spontaneous
  Country: JP (occurrence: JP)
  Receive Date: 20140712
  Receipt Date: 20140728
  Transmission Date: 20150326
  Serious: Yes (Other)
  Sender: FDA-Public Use
  Company Number: JP-009507513-1407JPN001477

PATIENT
  Age: 67 Year
  Sex: Female

DRUGS (11)
  1. SINGULAIR [Suspect]
     Active Substance: MONTELUKAST SODIUM
     Indication: ASTHMA
  2. HOKUNALIN [Suspect]
     Active Substance: TULOBUTEROL
     Indication: BRONCHITIS
     Dosage: 2 MG, QD
     Route: 062
     Dates: start: 20140623, end: 20140627
  3. MYSLEE [Concomitant]
     Active Substance: ZOLPIDEM TARTRATE
     Dosage: DAILY DOSAGE-UNKNOWN
     Route: 048
  4. SINGULAIR [Suspect]
     Active Substance: MONTELUKAST SODIUM
     Indication: BRONCHITIS
     Dosage: 10 MG, QD
     Route: 048
     Dates: start: 20140623, end: 20140627
  5. HOKUNALIN [Suspect]
     Active Substance: TULOBUTEROL
     Indication: COUGH
  6. BLOPRESS [Concomitant]
     Active Substance: CANDESARTAN CILEXETIL
     Indication: HYPERTENSION
     Dosage: 2 MG, QD
     Route: 048
     Dates: start: 20140329
  7. BAKUMONDO-TO [Suspect]
     Active Substance: HERBALS
     Indication: BRONCHITIS
     Dosage: 9 G, TID
     Route: 048
     Dates: start: 20140623, end: 20140627
  8. BAKUMONDO-TO [Suspect]
     Active Substance: HERBALS
     Indication: COUGH
  9. MUCODYNE [Concomitant]
     Active Substance: CARBOCYSTEINE
     Indication: ASTHMA
  10. LOCHOL (FLUVASTATIN SODIUM) [Concomitant]
     Active Substance: FLUVASTATIN SODIUM
     Indication: HYPERLIPIDAEMIA
     Dosage: 10 MG, QD
     Route: 048
     Dates: start: 20120315, end: 20140630
  11. MUCODYNE [Concomitant]
     Active Substance: CARBOCYSTEINE
     Indication: BRONCHITIS
     Dosage: 500 MG, TID
     Route: 048
     Dates: start: 20140623, end: 20140703

REACTIONS (2)
  - Myopathy [Recovered/Resolved]
  - Lower extremity mass [Unknown]

NARRATIVE: CASE EVENT DATE: 201406
